FAERS Safety Report 4477670-5 (Version None)
Quarter: 2004Q3

REPORT INFORMATION
  Report Type: 
  Country: None (occurrence: None)
  Receive Date: 20040923
  Receipt Date: 20040719
  Transmission Date: 20050211
  Serious: No
  Sender: FDA-Public Use
  Company Number: USA040773082

PATIENT
  Age: 51 Year
  Sex: Female

DRUGS (1)
  1. FORTEO [Suspect]
     Indication: OSTEOPOROSIS
     Dates: start: 20031001

REACTIONS (10)
  - COUGH [None]
  - EYE DISORDER [None]
  - HEADACHE [None]
  - INFECTION [None]
  - LOCALISED OEDEMA [None]
  - MUSCLE SPASMS [None]
  - MUSCULOSKELETAL STIFFNESS [None]
  - RHINITIS SEASONAL [None]
  - SPUTUM DISCOLOURED [None]
  - SWELLING [None]
